FAERS Safety Report 7951908-1 (Version None)
Quarter: 2011Q4

REPORT INFORMATION
  Report Type: 
  Country: None (occurrence: None)
  Receive Date: 20111130
  Receipt Date: 20111130
  Transmission Date: 20120403
  Serious: Yes (Hospitalization)
  Sender: FDA-Public Use
  Company Number: None

PATIENT
  Sex: Female
  Weight: 72.4 kg

DRUGS (2)
  1. LAPATINIB [Suspect]
     Indication: ANAL CANCER
     Dosage: 1000MG DAILY PO
     Route: 048
  2. CETUXIMAB IV 415 MG WEEKLY [Suspect]
     Dosage: 415 MG WEEKLY IV
     Route: 042

REACTIONS (3)
  - DEHYDRATION [None]
  - HYPOGLYCAEMIA [None]
  - SPEECH DISORDER [None]
